FAERS Safety Report 20364252 (Version 3)
Quarter: 2022Q1

REPORT INFORMATION
  Report Type: Report from Study
  Country: US (occurrence: US)
  Receive Date: 20220121
  Receipt Date: 20220209
  Transmission Date: 20220423
  Serious: Yes (Other)
  Sender: FDA-Public Use
  Company Number: US-ABBVIE-22K-163-4238137-00

PATIENT
  Sex: Male
  Weight: 78.996 kg

DRUGS (9)
  1. HUMIRA [Suspect]
     Active Substance: ADALIMUMAB
     Indication: Psoriasis
     Route: 058
     Dates: end: 20220202
  2. HUMIRA [Suspect]
     Active Substance: ADALIMUMAB
     Route: 058
     Dates: start: 202202
  3. TESTOSTERONE [Concomitant]
     Active Substance: TESTOSTERONE
     Indication: Androgen deficiency
  4. ALLOPURINOL [Concomitant]
     Active Substance: ALLOPURINOL
     Indication: Gout
  5. METFORMIN [Concomitant]
     Active Substance: METFORMIN HYDROCHLORIDE
     Indication: Diabetes mellitus
  6. LOSARTAN [Concomitant]
     Active Substance: LOSARTAN
     Indication: Hypertension
  7. COVID-19 VACCINE [Concomitant]
     Indication: COVID-19 immunisation
     Route: 030
  8. COVID-19 VACCINE [Concomitant]
     Route: 030
  9. COVID-19 VACCINE [Concomitant]
     Route: 030

REACTIONS (1)
  - Carpal tunnel syndrome [Unknown]
